FAERS Safety Report 4382001-5 (Version None)
Quarter: 2004Q2

REPORT INFORMATION
  Report Type: 
  Country: None (occurrence: None)
  Receive Date: 20040615
  Receipt Date: 20040601
  Transmission Date: 20050107
  Serious: Yes (Hospitalization)
  Sender: FDA-Public Use
  Company Number: CPVP2004FRA5167

PATIENT
  Age: 57 Year
  Sex: Female

DRUGS (6)
  1. GUTRON             (MIDODRINE) [Suspect]
     Indication: ORTHOSTATIC HYPOTENSION
     Dosage: 15 MG
     Route: 048
  2. SINEMET 10/100 (SINEMET) [Concomitant]
  3. MANTADIX (AMANTADINE HYDROCHLORIDE) [Concomitant]
  4. MOTILIUM [Concomitant]
  5. PARLODEL [Concomitant]
  6. UNICORDIUM (BEPREIDIL) [Concomitant]

REACTIONS (1)
  - CHEST PAIN [None]
